FAERS Safety Report 6174592-9 (Version None)
Quarter: 2009Q2

REPORT INFORMATION
  Report Type: 
  Country: None (occurrence: None)
  Receive Date: 20090430
  Receipt Date: 20080807
  Transmission Date: 20091009
  Serious: No
  Sender: FDA-Public Use
  Company Number: US-ASTRAZENECA-2008UW16311

PATIENT
  Age: 74 Year
  Sex: Female
  Weight: 81.6 kg

DRUGS (9)
  1. NEXIUM [Suspect]
     Indication: GASTROOESOPHAGEAL REFLUX DISEASE
     Route: 048
  2. NEXIUM [Suspect]
     Route: 048
  3. PREMARIN [Concomitant]
     Dosage: .625
  4. LISINOPRIL AND HYDROCHLOROTHIAZIDE [Concomitant]
  5. ZOLOFT [Concomitant]
  6. CLONAZEPAM [Concomitant]
     Dosage: 1 MG
  7. STOOL SOFTENER [Concomitant]
  8. NAPROXEN [Concomitant]
     Dosage: 500 MG
  9. SOMA [Concomitant]
     Dosage: 350 MG

REACTIONS (3)
  - EAR INFECTION [None]
  - ILL-DEFINED DISORDER [None]
  - SINUS DISORDER [None]
